FAERS Safety Report 4414867-4 (Version None)
Quarter: 2004Q3

REPORT INFORMATION
  Report Type: 
  Country: None (occurrence: None)
  Receive Date: 20040804
  Receipt Date: 20040102
  Transmission Date: 20050211
  Serious: No
  Sender: FDA-Public Use
  Company Number: US-BRISTOL-MYERS SQUIBB COMPANY-12468708

PATIENT
  Sex: Male

DRUGS (2)
  1. GLUCOVANCE [Suspect]
  2. GLUCOPHAGE XR [Suspect]

REACTIONS (1)
  - PAIN IN EXTREMITY [None]
